FAERS Safety Report 9332641 (Version 1)
Quarter: 2013Q2

REPORT INFORMATION
  Report Type: Report from Study
  Country: NL (occurrence: NL)
  Receive Date: 20130606
  Receipt Date: 20130606
  Transmission Date: 20140414
  Serious: Yes (Death)
  Sender: FDA-Public Use
  Company Number: NL-ROCHE-1231725

PATIENT
  Age: 66 Year
  Sex: Male

DRUGS (3)
  1. EPIRUBICIN [Suspect]
     Indication: GASTRIC CANCER
     Dosage: CUMMULATIVE DOSE: 278 MG?LAST DOSE PRIOR TO SAE 06/MAR/2013
     Route: 042
     Dates: start: 20130123
  2. CAPECITABINE [Suspect]
     Indication: GASTRIC CANCER
     Dosage: LAST DOSE PRIOR TO SAE ON 20/MAR/2013
     Route: 048
     Dates: start: 20130123
  3. CISPLATIN [Suspect]
     Indication: GASTRIC CANCER
     Dosage: CUMULATIVE DOSE: 338 MG?LAST DOSE PRIOR TO SAE ON 06/MAR/2013
     Route: 042
     Dates: start: 20130123

REACTIONS (1)
  - Pancreatitis [Fatal]
